FAERS Safety Report 8218942-8 (Version None)
Quarter: 2012Q1

REPORT INFORMATION
  Report Type: 
  Country: None (occurrence: None)
  Receive Date: 20120307
  Receipt Date: 20111209
  Transmission Date: 20120608
  Serious: Yes (Hospitalization)
  Sender: FDA-Public Use
  Company Number: US-IGSA-IG994

PATIENT
  Age: 63 Year
  Sex: Male
  Weight: 115 kg

DRUGS (4)
  1. FLEBOGAMMA [Suspect]
     Indication: DIFFUSE LARGE B-CELL LYMPHOMA
     Dosage: 17 GM;1X;IV
     Route: 042
     Dates: start: 20110822, end: 20110822
  2. AMLODIPINE [Concomitant]
  3. AMIODARONE HYDROCHLORIDE [Concomitant]
  4. DILTIAZEM HCL [Concomitant]

REACTIONS (3)
  - DYSPNOEA [None]
  - CHEST PAIN [None]
  - ABDOMINAL PAIN UPPER [None]
